FAERS Safety Report 21407239 (Version 1)
Quarter: 2022Q4

REPORT INFORMATION
  Report Type: Spontaneous
  Country: JP (occurrence: JP)
  Receive Date: 20221004
  Receipt Date: 20221004
  Transmission Date: 20230113
  Serious: Yes (Hospitalization)
  Sender: FDA-Public Use
  Company Number: JP-BAYER-2022A135806

PATIENT
  Sex: Female

DRUGS (1)
  1. MIRENA [Suspect]
     Active Substance: LEVONORGESTREL
     Dosage: 20?G/DAY
     Route: 015
     Dates: start: 202205

REACTIONS (5)
  - Malaise [None]
  - Decreased appetite [None]
  - Discouragement [None]
  - Pyrexia [None]
  - Nasopharyngitis [None]

NARRATIVE: CASE EVENT DATE: 20220901
